FAERS Safety Report 18478084 (Version 1)
Quarter: 2020Q4

REPORT INFORMATION
  Report Type: Spontaneous
  Country: US (occurrence: US)
  Receive Date: 20201108
  Receipt Date: 20201108
  Transmission Date: 20210114
  Serious: Yes (Other)
  Sender: FDA-Public Use
  Company Number: US-ALXN-A202016135

PATIENT
  Sex: Female

DRUGS (1)
  1. SOLIRIS [Suspect]
     Active Substance: ECULIZUMAB
     Indication: MYASTHENIA GRAVIS
     Dosage: UNK
     Route: 065

REACTIONS (10)
  - Stress [Unknown]
  - Heart rate decreased [Unknown]
  - Fall [Unknown]
  - Muscle twitching [Unknown]
  - Rash macular [Unknown]
  - Blood pressure increased [Unknown]
  - Aphasia [Unknown]
  - Paralysis [Recovered/Resolved]
  - Herpes zoster [Unknown]
  - Apheresis [Unknown]

NARRATIVE: CASE EVENT DATE: 201806
